FAERS Safety Report 20099252 (Version 1)
Quarter: 2021Q4

REPORT INFORMATION
  Report Type: Spontaneous
  Country: US (occurrence: US)
  Receive Date: 20211122
  Receipt Date: 20211122
  Transmission Date: 20220303
  Serious: No
  Sender: FDA-Public Use
  Company Number: US-AMGEN-USASP2021180607

PATIENT
  Age: 76 Year
  Sex: Female

DRUGS (2)
  1. REPATHA [Suspect]
     Active Substance: EVOLOCUMAB
     Indication: Hyperlipidaemia
     Dosage: 140 MILLIGRAM, Q2WK
     Route: 065
  2. REPATHA [Suspect]
     Active Substance: EVOLOCUMAB
     Dosage: 140 MILLIGRAM, Q2WK
     Route: 065

REACTIONS (5)
  - Device difficult to use [Unknown]
  - Wrong technique in product usage process [Unknown]
  - Arthritis [Unknown]
  - Injection site bruising [Unknown]
  - Injection site pain [Unknown]

NARRATIVE: CASE EVENT DATE: 20211112
